FAERS Safety Report 9839228 (Version 1)
Quarter: 2014Q1

REPORT INFORMATION
  Report Type: Spontaneous
  Country: GB (occurrence: None)
  Receive Date: 20140116
  Receipt Date: 20140116
  Transmission Date: 20141002
  Serious: Yes (Death)
  Sender: FDA-Public Use
  Company Number: GB-MDCO-14-00005

PATIENT
  Sex: Male

DRUGS (1)
  1. ANGIOX [Suspect]
     Indication: PERCUTANEOUS CORONARY INTERVENTION
     Dosage: UNKNOWN, UNKNOWN

REACTIONS (4)
  - Blood pressure decreased [None]
  - International normalised ratio increased [None]
  - Peripheral ischaemia [None]
  - Medical device complication [None]
